FAERS Safety Report 5903586-0 (Version None)
Quarter: 2008Q3

REPORT INFORMATION
  Report Type: 
  Country: None (occurrence: None)
  Receive Date: 20080930
  Receipt Date: 20080930
  Transmission Date: 20090109
  Serious: Yes (Other)
  Sender: FDA-Public Use
  Company Number: GB-RB-003808-08

PATIENT
  Age: 48 Year
  Sex: Male

DRUGS (4)
  1. SUBUTEX [Suspect]
     Indication: DRUG WITHDRAWAL SYNDROME
     Dosage: DOSING INFORMATION UNKNOWN.
     Route: 060
  2. CARBAMAZEPINE [Concomitant]
     Dosage: 400 MG ONCE QAM AND 600 MG ONCE QPM
     Route: 065
  3. HEROIN [Concomitant]
     Indication: DRUG USE FOR UNKNOWN INDICATION
     Dosage: DOSING INFORMATION UNKNOWN.
     Route: 065
  4. HEROIN [Suspect]
     Dosage: DOSING INFORMATION UNKNOWN.
     Route: 065

REACTIONS (2)
  - EPILEPSY [None]
  - SUBSTANCE ABUSE [None]
